FAERS Safety Report 20474534 (Version 1)
Quarter: 2022Q1

REPORT INFORMATION
  Report Type: Spontaneous
  Country: US (occurrence: US)
  Receive Date: 20220215
  Receipt Date: 20220215
  Transmission Date: 20220423
  Serious: Yes (Other)
  Sender: FDA-Public Use
  Company Number: US-GLAXOSMITHKLINE- US2022GSK025725

PATIENT
  Sex: Male

DRUGS (7)
  1. ZANTAC [Suspect]
     Active Substance: RANITIDINE HYDROCHLORIDE
     Indication: Post-traumatic stress disorder
     Dosage: 150 MG, QD
     Route: 065
     Dates: start: 200401, end: 200701
  2. ZANTAC [Suspect]
     Active Substance: RANITIDINE HYDROCHLORIDE
     Indication: Post-traumatic stress disorder
     Dosage: 150 MG, QD
     Route: 065
     Dates: start: 200401, end: 200701
  3. RANITIDINE [Suspect]
     Active Substance: RANITIDINE
     Indication: Post-traumatic stress disorder
     Dosage: 150 MG, QD
     Route: 065
     Dates: start: 200401, end: 200701
  4. RANITIDINE [Suspect]
     Active Substance: RANITIDINE
     Indication: Post-traumatic stress disorder
     Dosage: 150 MG, QD
     Route: 065
     Dates: start: 200401, end: 200701
  5. ZANTAC [Suspect]
     Active Substance: RANITIDINE HYDROCHLORIDE
     Indication: Post-traumatic stress disorder
     Dosage: 150 MG, QD
     Route: 065
     Dates: start: 200401, end: 200701
  6. RANITIDINE [Suspect]
     Active Substance: RANITIDINE
     Indication: Post-traumatic stress disorder
     Dosage: 150 MG, QD
     Route: 065
     Dates: start: 200401, end: 200701
  7. RANITIDINE [Suspect]
     Active Substance: RANITIDINE
     Indication: Post-traumatic stress disorder
     Dosage: 150 MG, QD
     Route: 065
     Dates: start: 200401, end: 200701

REACTIONS (1)
  - Bladder cancer [Unknown]
